FAERS Safety Report 6662996-7 (Version None)
Quarter: 2010Q1

REPORT INFORMATION
  Report Type: 
  Country: None (occurrence: None)
  Receive Date: 20100322
  Receipt Date: 20100308
  Transmission Date: 20100710
  Serious: No
  Sender: FDA-Public Use
  Company Number: 2010-00311

PATIENT
  Sex: Female

DRUGS (1)
  1. ZICAM COLD REMEDY PLUS SORE THROAT RELIEF:  LIQUI-LOZ [Suspect]
     Indication: OROPHARYNGEAL PAIN
     Dosage: ONCE OR TWICE, 3 DAYS
     Dates: start: 20100301, end: 20100306

REACTIONS (2)
  - AGEUSIA [None]
  - HYPOAESTHESIA ORAL [None]
